FAERS Safety Report 9329118 (Version 1)
Quarter: 2013Q2

REPORT INFORMATION
  Report Type: Spontaneous
  Country: US (occurrence: US)
  Receive Date: 20130604
  Receipt Date: 20130604
  Transmission Date: 20140414
  Serious: No
  Sender: FDA-Public Use
  Company Number: US-SANOFI-AVENTIS-2013SA022532

PATIENT
  Sex: 0

DRUGS (4)
  1. LANTUS [Suspect]
     Dosage: DOSE:100 UNIT(S)
  2. NOVOLOG [Suspect]
     Dosage: DOSE:55 UNIT(S)
  3. ORAL ANTIDIABETICS [Suspect]
  4. ALL OTHER THERAPEUTIC PRODUCTS [Suspect]

REACTIONS (1)
  - Blood creatinine abnormal [Unknown]
